FAERS Safety Report 9063735 (Version 1)
Quarter: 2013Q1

REPORT INFORMATION
  Report Type: Spontaneous
  Country: US (occurrence: US)
  Receive Date: 20130131
  Receipt Date: 20130131
  Transmission Date: 20140127
  Serious: No
  Sender: FDA-Public Use
  Company Number: US-ABBOTT-12P-163-0991979-00

PATIENT
  Sex: 0

DRUGS (4)
  1. HUMIRA [Suspect]
     Indication: PRODUCT USED FOR UNKNOWN INDICATION
     Route: 058
  2. HUMIRA [Suspect]
  3. METHOTREXATE [Concomitant]
     Indication: CROHN^S DISEASE
     Dosage: 25 MG A WEEK
  4. SULFASALAZINE [Concomitant]
     Indication: ARTHRITIS
     Dosage: WORKING WAY UP TO A FULL DOSE

REACTIONS (4)
  - Vasculitis [Unknown]
  - Joint swelling [Unknown]
  - Drug ineffective [Recovered/Resolved]
  - Hypersensitivity [Unknown]
